FAERS Safety Report 19620730 (Version 2)
Quarter: 2021Q3

REPORT INFORMATION
  Report Type: Report from Study
  Country: US (occurrence: US)
  Receive Date: 20210728
  Receipt Date: 20210802
  Transmission Date: 20211014
  Serious: Yes (Disabling)
  Sender: FDA-Public Use
  Company Number: US-VALIDUS PHARMACEUTICALS LLC-VDP-2021-000014

PATIENT
  Age: 71 Year
  Sex: Female

DRUGS (7)
  1. DUPIXENT [Suspect]
     Active Substance: DUPILUMAB
     Indication: DERMATITIS ALLERGIC
  2. DUPIXENT [Suspect]
     Active Substance: DUPILUMAB
     Indication: DERMATITIS ATOPIC
     Dosage: 300 MILLIGRAM,QOW
     Route: 058
     Dates: start: 2021, end: 20210708
  3. ALBUTEROL [SALBUTAMOL] [Concomitant]
     Active Substance: ALBUTEROL
     Indication: PRODUCT USED FOR UNKNOWN INDICATION
     Dosage: UNK
     Route: 065
  4. LASIX [Suspect]
     Active Substance: FUROSEMIDE
     Indication: ABDOMINAL DISTENSION
  5. DUPIXENT [Suspect]
     Active Substance: DUPILUMAB
     Indication: ASTHMA
     Dosage: 600 MILLIGRAM, 1X
     Route: 058
     Dates: start: 20210415, end: 20210415
  6. LASIX [Suspect]
     Active Substance: FUROSEMIDE
     Indication: CARDIAC DISORDER
     Dosage: 40 MILLIGRAM, QD
     Route: 065
  7. LASIX [Suspect]
     Active Substance: FUROSEMIDE
     Indication: GENERALISED OEDEMA
     Dosage: 40 MILLIGRAM, BID
     Route: 065

REACTIONS (28)
  - Gastrooesophageal reflux disease [Not Recovered/Not Resolved]
  - Product use in unapproved indication [Unknown]
  - Sinusitis [Unknown]
  - Hypotension [Unknown]
  - Throat lesion [Unknown]
  - Headache [Not Recovered/Not Resolved]
  - Dizziness [Unknown]
  - Cardiac disorder [Not Recovered/Not Resolved]
  - Rash erythematous [Unknown]
  - Laryngitis [Not Recovered/Not Resolved]
  - Weight increased [Not Recovered/Not Resolved]
  - Pain [Unknown]
  - Oropharyngeal pain [Unknown]
  - Pollakiuria [Not Recovered/Not Resolved]
  - Nausea [Unknown]
  - Asthenia [Unknown]
  - Paraesthesia [Unknown]
  - Fatigue [Unknown]
  - Pain [Recovered/Resolved]
  - Abdominal discomfort [Not Recovered/Not Resolved]
  - Abdominal distension [Not Recovered/Not Resolved]
  - Urine output decreased [Not Recovered/Not Resolved]
  - Constipation [Not Recovered/Not Resolved]
  - Throat irritation [Unknown]
  - Hypoaesthesia [Unknown]
  - Malaise [Unknown]
  - Generalised oedema [Not Recovered/Not Resolved]
  - Fear of injection [Recovered/Resolved]

NARRATIVE: CASE EVENT DATE: 20210415
